FAERS Safety Report 11559075 (Version 2)
Quarter: 2015Q4

REPORT INFORMATION
  Report Type: Spontaneous
  Country: IE (occurrence: IE)
  Receive Date: 20150928
  Receipt Date: 20151016
  Transmission Date: 20160304
  Serious: Yes (Other)
  Sender: FDA-Public Use
  Company Number: IE-009507513-1509IRL013391

PATIENT
  Age: 33 Year
  Sex: Female

DRUGS (5)
  1. ORGALUTRAN [Suspect]
     Active Substance: GANIRELIX ACETATE
     Indication: ASSISTED FERTILISATION
     Dosage: 0.25MG/0.5ML
     Dates: start: 20150602
  2. MENOPUR [Suspect]
     Active Substance: FOLLICLE STIMULATING HORMONE BETA POLYPEPTIDE\LUTROPIN ALFA
     Indication: ASSISTED FERTILISATION
     Dosage: 150 IU, QD,POWDER AND SOLVENT FOR SOLN FOR INJECTION
     Dates: start: 20150528, end: 20150602
  3. MENOPUR [Suspect]
     Active Substance: FOLLICLE STIMULATING HORMONE BETA POLYPEPTIDE\LUTROPIN ALFA
     Dosage: 100 IU, DAILY,POWDER AND SOLVENT FOR SOLN FOR INJECTION
     Dates: start: 20150602
  4. PREGNYL [Suspect]
     Active Substance: CHORIOGONADOTROPIN ALFA
     Indication: ASSISTED FERTILISATION
     Dosage: 10000 IU
     Dates: start: 20150607
  5. CRINONE [Concomitant]
     Active Substance: PROGESTERONE
     Dosage: 8%,TWICE DAILY
     Dates: start: 20150607

REACTIONS (5)
  - Nausea [Recovered/Resolved]
  - Dyspnoea [Recovered/Resolved]
  - Fluid retention [Recovered/Resolved]
  - Ovarian hyperstimulation syndrome [Recovered/Resolved]
  - Abdominal distension [Recovered/Resolved]

NARRATIVE: CASE EVENT DATE: 20150623
